FAERS Safety Report 22029388 (Version 1)
Quarter: 2023Q1

REPORT INFORMATION
  Report Type: Spontaneous
  Country: CH (occurrence: CH)
  Receive Date: 20230223
  Receipt Date: 20230223
  Transmission Date: 20230417
  Serious: Yes (Hospitalization, Other)
  Sender: FDA-Public Use
  Company Number: None

PATIENT
  Age: 67 Year
  Sex: Male
  Weight: 65 kg

DRUGS (21)
  1. XGEVA [Suspect]
     Active Substance: DENOSUMAB
     Indication: Product used for unknown indication
     Dosage: DISCONTINUATION OF FURTHER TREATMENT (ADMINISTRATION EVERY FOUR WEEKS IN CYCLES WAS PLANNED)
     Route: 058
     Dates: start: 20221221, end: 20221221
  2. REVLIMID [Suspect]
     Active Substance: LENALIDOMIDE
     Indication: Product used for unknown indication
     Dosage: REVLIMID 15 MG ORALLY, ADAPTED TO THE KIDNEY FUNCTION,EVERY TWO DAYS FROM 09-DEC TO 04-JAN-2023DISCO
     Route: 048
     Dates: start: 20221209, end: 20221230
  3. REVLIMID [Suspect]
     Active Substance: LENALIDOMIDE
     Dosage: RECHALLENGE FROM 23-JAN-2023 WITH 25 MG/DAY THROUGHOUT FOR 3 WEEKS, THEN 1 WEEK DRUG HOLIDAY FURTHER
     Route: 065
     Dates: start: 20230123
  4. DEXAMETHASONE [Suspect]
     Active Substance: DEXAMETHASONE
     Indication: Product used for unknown indication
     Dosage: 8 MILLIGRAM
     Route: 048
     Dates: start: 20221129, end: 20221213
  5. DEXAMETHASONE [Suspect]
     Active Substance: DEXAMETHASONE
     Dosage: REDUCED DOSE 8 MG INSTEAD OF 20 MG DUE TO PREVIOUS MENTAL DISORDER 29-NOV TO 13-DEC-2022, 2ND CYCLE?
     Route: 048
     Dates: start: 20221222, end: 20221228
  6. DEXAMETHASONE [Suspect]
     Active Substance: DEXAMETHASONE
     Dosage: RECHALLENGE DEXAMETHASONE FROM 23-JAN-2023 WITH 12 MG ON MONDAYS AND 8 MG ON TUESDAYS FOR 3 WEEKS, T
     Route: 048
     Dates: start: 20230123
  7. VELCADE [Suspect]
     Active Substance: BORTEZOMIB
     Indication: Product used for unknown indication
     Dosage: VELCADE 2.31. MG (1.3 MG/M2) INTRAVENOUSLY FROM 29-NOV TO 13-DEC-2022 (DAY 1, 4, 8, 11) TOGETHER DEX
     Route: 042
     Dates: start: 20221129, end: 20221213
  8. ELIQUIS [Concomitant]
     Active Substance: APIXABAN
     Dosage: 2.5 MILLIGRAM, Q12H
  9. ATORVASTATIN [Concomitant]
     Active Substance: ATORVASTATIN
     Dosage: 40 MILLIGRAM, QD
  10. CITALOPRAM [Concomitant]
     Active Substance: CITALOPRAM HYDROBROMIDE
     Dosage: 20 MILLIGRAM, QD
  11. CLOZAPINE [Concomitant]
     Active Substance: CLOZAPINE
     Dosage: 200 MILLIGRAM, QD
     Dates: end: 20230101
  12. CLOZAPINE [Concomitant]
     Active Substance: CLOZAPINE
     Dosage: 200 MILLIGRAM, QD
     Dates: start: 20230109
  13. Temesta [Concomitant]
     Dosage: 1 MILLIGRAM, Q8H
  14. BACTRIM [Concomitant]
     Active Substance: SULFAMETHOXAZOLE\TRIMETHOPRIM
     Dosage: 800 MILLIGRAM
     Dates: start: 202212
  15. VALTREX [Concomitant]
     Active Substance: VALACYCLOVIR HYDROCHLORIDE
     Dosage: 500 MILLIGRAM
     Dates: start: 202212
  16. TAMSULOSIN HYDROCHLORIDE [Concomitant]
     Active Substance: TAMSULOSIN HYDROCHLORIDE
     Dosage: 0.4 MILLIGRAM
  17. VITAMIN D3 [Concomitant]
     Active Substance: CHOLECALCIFEROL
     Dosage: 1.4 MILLILITER, QWK
  18. ALBUTEROL SULFATE\IPRATROPIUM BROMIDE [Concomitant]
     Active Substance: ALBUTEROL SULFATE\IPRATROPIUM BROMIDE
     Dosage: 1 DOSAGE FORM, Q8H
  19. ASPIRIN [Concomitant]
     Active Substance: ASPIRIN
     Dosage: 100 MILLIGRAM, QD
     Dates: end: 20221222
  20. BISOPROLOL FUMARATE [Concomitant]
     Active Substance: BISOPROLOL FUMARATE
     Dates: end: 20221223
  21. MIRCERA [Concomitant]
     Active Substance: METHOXY POLYETHYLENE GLYCOL-EPOETIN BETA
     Dosage: IN TOTAL
     Route: 058
     Dates: start: 20221221, end: 20221221

REACTIONS (2)
  - Drug interaction [Recovered/Resolved]
  - Hypocalcaemia [Recovered/Resolved]

NARRATIVE: CASE EVENT DATE: 20221201
